FAERS Safety Report 19512631 (Version 1)
Quarter: 2021Q3

REPORT INFORMATION
  Report Type: Spontaneous
  Country: US (occurrence: US)
  Receive Date: 20210709
  Receipt Date: 20210709
  Transmission Date: 20211014
  Serious: Yes (Other)
  Sender: FDA-Public Use
  Company Number: US-INTRA-CELLULAR THERAPIES, INC.-2021ICT00310

PATIENT
  Age: 67 Year
  Sex: Male

DRUGS (8)
  1. LISINOPRIL. [Concomitant]
     Active Substance: LISINOPRIL
  2. CLOZAPINE. [Concomitant]
     Active Substance: CLOZAPINE
  3. CAPLYTA [Suspect]
     Active Substance: LUMATEPERONE
     Indication: SCHIZOPHRENIA
     Dosage: UNK
  4. XANAX [Concomitant]
     Active Substance: ALPRAZOLAM
  5. UNSPECIFIED ^2 OTHER MEDICATIONS^ [Concomitant]
     Indication: SCHIZOPHRENIA
  6. VIAGRA [Concomitant]
     Active Substance: SILDENAFIL CITRATE
  7. BELSOMRA [Concomitant]
     Active Substance: SUVOREXANT
  8. AMLODIPINE [Concomitant]
     Active Substance: AMLODIPINE BESYLATE

REACTIONS (4)
  - Skin exfoliation [Unknown]
  - Unevaluable event [Unknown]
  - Stomatitis [Unknown]
  - Dry mouth [Unknown]

NARRATIVE: CASE EVENT DATE: 2021
